FAERS Safety Report 16607672 (Version 1)
Quarter: 2019Q3

REPORT INFORMATION
  Report Type: Spontaneous
  Country: GB (occurrence: GB)
  Receive Date: 20190722
  Receipt Date: 20190722
  Transmission Date: 20191004
  Serious: Yes (Other)
  Sender: FDA-Public Use
  Company Number: GB-ACCORD-139472

PATIENT
  Age: 60 Year
  Sex: Female
  Weight: 58 kg

DRUGS (11)
  1. NICORANDIL [Concomitant]
     Active Substance: NICORANDIL
     Dates: start: 2018
  2. TICAGRELOR. [Concomitant]
     Active Substance: TICAGRELOR
     Dates: start: 2018
  3. ZOLEDRONIC ACID [Suspect]
     Active Substance: ZOLEDRONIC ACID
     Indication: OSTEOPOROSIS
     Route: 042
     Dates: start: 20190401, end: 20190401
  4. ACIDEX [Concomitant]
     Active Substance: CALCIUM CARBONATE\SODIUM ALGINATE\SODIUM BICARBONATE
     Dates: start: 2018
  5. RANITIDINE. [Concomitant]
     Active Substance: RANITIDINE
     Dates: start: 2018
  6. ROSUVASTATIN/ROSUVASTATIN CALCIUM [Concomitant]
     Dates: start: 2018
  7. EZETIMIBE. [Concomitant]
     Active Substance: EZETIMIBE
     Dates: start: 2018
  8. ADCAL [Concomitant]
     Dates: start: 2018
  9. ACETYLSALICYLIC ACID [Concomitant]
     Active Substance: ASPIRIN
  10. BISOPROLOL [Concomitant]
     Active Substance: BISOPROLOL
     Dates: start: 2018
  11. RAMIPRIL. [Concomitant]
     Active Substance: RAMIPRIL
     Dates: start: 2018

REACTIONS (8)
  - Decreased appetite [Recovering/Resolving]
  - Urinary retention [Recovering/Resolving]
  - Pain [Recovering/Resolving]
  - Headache [Recovering/Resolving]
  - Fatigue [Recovering/Resolving]
  - Nausea [Recovering/Resolving]
  - Bradyphrenia [Recovering/Resolving]
  - Confusional state [Recovering/Resolving]

NARRATIVE: CASE EVENT DATE: 20190401
